FAERS Safety Report 8394011-1 (Version None)
Quarter: 2012Q2

REPORT INFORMATION
  Report Type: 
  Country: None (occurrence: None)
  Receive Date: 20120523
  Receipt Date: 20120517
  Transmission Date: 20120825
  Serious: Yes (Other)
  Sender: FDA-Public Use
  Company Number: ACO_30170_2012

PATIENT
  Age: 66 Year
  Sex: Male
  Weight: 95.2 kg

DRUGS (7)
  1. TRIAMTERENE [Concomitant]
  2. AMPYRA [Suspect]
     Indication: BALANCE DISORDER
     Dosage: 10 MG, BID, ORAL
     Route: 048
     Dates: start: 20111104, end: 20120214
  3. AMPYRA [Suspect]
     Indication: GAIT DISTURBANCE
     Dosage: 10 MG, BID, ORAL
     Route: 048
     Dates: start: 20111104, end: 20120214
  4. ATENOLOL [Concomitant]
  5. LOSARTAN [Concomitant]
  6. BETASERON (HUMAN GLUCOSE, INTERFERON BETA) [Concomitant]
  7. CLONIDINE [Concomitant]

REACTIONS (2)
  - ALANINE AMINOTRANSFERASE INCREASED [None]
  - ASPARTATE AMINOTRANSFERASE INCREASED [None]
